FAERS Safety Report 22956013 (Version 3)
Quarter: 2024Q2

REPORT INFORMATION
  Report Type: Report from Study
  Country: DE (occurrence: DE)
  Receive Date: 20230919
  Receipt Date: 20240403
  Transmission Date: 20240715
  Serious: Yes (Other)
  Sender: FDA-Public Use
  Company Number: DE-ROCHE-2266873

PATIENT
  Age: 50 Year
  Sex: Female

DRUGS (11)
  1. KESIMPTA [Suspect]
     Active Substance: OFATUMUMAB
     Indication: Product used for unknown indication
     Dosage: UNK
     Route: 065
  2. OCRELIZUMAB [Suspect]
     Active Substance: OCRELIZUMAB
     Indication: Relapsing-remitting multiple sclerosis
     Dosage: 600 MG, INTERVAL 182 DAYS, DATE OF TREATMENT WAS 01 FEB 2022
     Route: 042
     Dates: start: 20180717, end: 20230201
  3. OCRELIZUMAB [Suspect]
     Active Substance: OCRELIZUMAB
     Dosage: 600 MG, NUMBER OF INTERVAL IS 182 DAYS
     Route: 042
     Dates: start: 2021, end: 20230201
  4. OCRELIZUMAB [Suspect]
     Active Substance: OCRELIZUMAB
     Dosage: 600 MG
     Route: 042
     Dates: start: 20210203
  5. OCRELIZUMAB [Suspect]
     Active Substance: OCRELIZUMAB
     Dosage: 600 MG, UNKNOWN
     Route: 042
     Dates: start: 20200728
  6. CANDESARTAN [Concomitant]
     Active Substance: CANDESARTAN
     Indication: Product used for unknown indication
     Dosage: 16/12.5, 8/6.25, 3/6.25 AND 6/12.5 MG (5-0-0), QD
     Route: 065
  7. HYDROCHLOROTHIAZIDE [Concomitant]
     Active Substance: HYDROCHLOROTHIAZIDE
     Indication: Product used for unknown indication
     Dosage: 25 MG
     Route: 065
  8. MIRABEGRON [Concomitant]
     Active Substance: MIRABEGRON
     Indication: Product used for unknown indication
     Dosage: UNK
     Route: 065
  9. LEVOTHYROXINE SODIUM [Concomitant]
     Active Substance: LEVOTHYROXINE SODIUM
     Indication: Product used for unknown indication
     Dosage: 50 UG
     Route: 065
  10. METAMIZOLE [Concomitant]
     Active Substance: METAMIZOLE
     Indication: Product used for unknown indication
     Dosage: 500 MG
     Route: 065
  11. DIETARY SUPPLEMENT\HERBALS [Concomitant]
     Active Substance: DIETARY SUPPLEMENT\HERBALS
     Indication: Product used for unknown indication
     Dosage: UNK
     Route: 065

REACTIONS (33)
  - Demyelination [Recovered/Resolved]
  - Tooth infection [Recovering/Resolving]
  - Sensory disturbance [Recovered/Resolved]
  - Lipoedema [Recovering/Resolving]
  - Abdominal pain upper [Recovered/Resolved]
  - C-reactive protein increased [Not Recovered/Not Resolved]
  - Asthenia [Recovering/Resolving]
  - Neck pain [Recovered/Resolved]
  - Lip disorder [Recovering/Resolving]
  - Gingivitis [Recovered/Resolved]
  - Noninfective gingivitis [Recovering/Resolving]
  - Dysphagia [Recovered/Resolved]
  - Glossodynia [Recovered/Resolved]
  - Slow speech [Recovering/Resolving]
  - Dyspepsia [Recovered/Resolved]
  - Pain in jaw [Recovered/Resolved]
  - Back pain [Recovered/Resolved]
  - Constipation [Recovering/Resolving]
  - Bladder dysfunction [Not Recovered/Not Resolved]
  - Hypogeusia [Recovering/Resolving]
  - Balance disorder [Recovering/Resolving]
  - Aphasia [Recovering/Resolving]
  - Myalgia [Recovered/Resolved]
  - Hypertension [Recovered/Resolved]
  - Headache [Recovered/Resolved]
  - Fatigue [Recovered/Resolved]
  - Fatigue [Recovered/Resolved]
  - Fatigue [Recovered/Resolved]
  - Blood pressure increased [Recovering/Resolving]
  - Onychomycosis [Not Recovered/Not Resolved]
  - Erythema nodosum [Recovered/Resolved]
  - Headache [Recovered/Resolved]
  - Therapeutic product effect decreased [Unknown]

NARRATIVE: CASE EVENT DATE: 20190101
